FAERS Safety Report 10033184 (Version 2)
Quarter: 2014Q2

REPORT INFORMATION
  Report Type: Report from Study
  Country: US (occurrence: US)
  Receive Date: 20140324
  Receipt Date: 20140401
  Transmission Date: 20141212
  Serious: Yes (Death)
  Sender: FDA-Public Use
  Company Number: US-ACTELION-A-US2014-96528

PATIENT
  Age: 74 Year
  Sex: Female

DRUGS (4)
  1. VENTAVIS [Suspect]
     Indication: PULMONARY ARTERIAL HYPERTENSION
     Dosage: 2.5 MCG, 6 X DAY
     Route: 055
     Dates: start: 201302, end: 20140308
  2. VENTAVIS [Suspect]
     Dosage: 5 UNK, 6-9 XDAY
     Route: 055
     Dates: start: 20130909
  3. ADCIRCA [Concomitant]
  4. WARFARIN [Concomitant]

REACTIONS (2)
  - Interstitial lung disease [Fatal]
  - Pulmonary arterial hypertension [Fatal]
